FAERS Safety Report 8690778 (Version 2)
Quarter: 2013Q4

REPORT INFORMATION
  Report Type: Report from Study
  Country: FR (occurrence: FR)
  Receive Date: 20120728
  Receipt Date: 20131106
  Transmission Date: 20140711
  Serious: Yes (Hospitalization)
  Sender: FDA-Public Use
  Company Number: FR-009507513-1207FRA009468

PATIENT
  Age: 82 Year
  Sex: Male
  Weight: 72 kg

DRUGS (11)
  1. TEMOZOLOMIDE [Suspect]
     Indication: GLIOBLASTOMA
     Dosage: UNK, QD
     Route: 048
     Dates: start: 20120626, end: 20120711
  2. SOLUPRED [Concomitant]
     Indication: OEDEMA
     Dosage: UNK
     Dates: start: 20120711
  3. URBANYL [Concomitant]
     Indication: EPILEPSY
     Dosage: UNK
     Dates: start: 20120711
  4. KEPPRA [Concomitant]
     Indication: EPILEPSY
     Dosage: UNK
     Dates: start: 20120415
  5. CERVOXAN [Concomitant]
     Indication: COGNITIVE DISORDER
     Dosage: UNK
     Dates: start: 20120618
  6. INIPOMP [Concomitant]
     Indication: OESOPHAGITIS
     Dosage: UNK
     Dates: start: 20120414
  7. GLUCOPHAGE [Concomitant]
     Indication: DIABETES MELLITUS
     Dosage: UNK
     Dates: start: 20120414
  8. SEROPLEX [Concomitant]
     Indication: ANXIETY
     Dosage: UNK
     Dates: start: 20120706
  9. TAHOR [Concomitant]
     Indication: BLOOD CHOLESTEROL
     Dosage: UNK
     Dates: start: 20120711
  10. DI-HYDAN [Concomitant]
     Indication: EPILEPSY
     Dosage: UNK
     Dates: start: 20120711
  11. SOTALOL HYDROCHLORIDE [Concomitant]
     Indication: HYPERTENSION
     Dosage: UNK
     Dates: start: 20120711

REACTIONS (2)
  - Lethargy [Not Recovered/Not Resolved]
  - Convulsion [Not Recovered/Not Resolved]
